FAERS Safety Report 7764956-1 (Version None)
Quarter: 2011Q3

REPORT INFORMATION
  Report Type: 
  Country: None (occurrence: None)
  Receive Date: 20110921
  Receipt Date: 20110909
  Transmission Date: 20111222
  Serious: Yes (Other)
  Sender: FDA-Public Use
  Company Number: JP-PFIZER INC-2011212312

PATIENT
  Age: 50 Year
  Sex: Female

DRUGS (5)
  1. RABEPRAZOLE SODIUM [Suspect]
     Dosage: UNK
     Route: 048
     Dates: end: 20110830
  2. CELECOXIB [Suspect]
     Route: 048
  3. POLARAMINE [Suspect]
     Dosage: 6 MG, DAILY
     Route: 048
     Dates: start: 20110829, end: 20110908
  4. OLOPATADINE HCL [Suspect]
     Dosage: 10 MG DAILY
     Route: 048
     Dates: start: 20110829, end: 20110908
  5. GARENOXACIN [Concomitant]
     Dosage: UNK
     Route: 048
     Dates: start: 20110829, end: 20110829

REACTIONS (6)
  - ABDOMINAL DISCOMFORT [None]
  - HEADACHE [None]
  - LOSS OF CONSCIOUSNESS [None]
  - HYPERHIDROSIS [None]
  - HYPOAESTHESIA [None]
  - MALAISE [None]
